FAERS Safety Report 18123588 (Version 1)
Quarter: 2020Q3

REPORT INFORMATION
  Report Type: Spontaneous
  Country: US (occurrence: US)
  Receive Date: 20200807
  Receipt Date: 20200807
  Transmission Date: 20201103
  Serious: No
  Sender: FDA-Public Use
  Company Number: None

PATIENT
  Age: 64 Year
  Sex: Female
  Weight: 86.1 kg

DRUGS (2)
  1. NERATINIB 120 MG PO DALIY [Concomitant]
     Dates: start: 20190812
  2. CAPECITABINE. [Suspect]
     Active Substance: CAPECITABINE
     Indication: BREAST CANCER METASTATIC
     Route: 048
     Dates: start: 20190812, end: 20200615

REACTIONS (1)
  - Punctate keratitis [None]

NARRATIVE: CASE EVENT DATE: 20200615
